FAERS Safety Report 17950568 (Version 2)
Quarter: 2022Q1

REPORT INFORMATION
  Report Type: Spontaneous
  Country: US (occurrence: US)
  Receive Date: 20200626
  Receipt Date: 20220328
  Transmission Date: 20220423
  Serious: Yes (Death, Other)
  Sender: FDA-Public Use
  Company Number: US-SAARTEMIS-SAC202006240183

PATIENT
  Age: 83 Year
  Sex: Male

DRUGS (1)
  1. ZANTAC [Suspect]
     Active Substance: RANITIDINE HYDROCHLORIDE
     Indication: Dyspepsia
     Dosage: UNK, FREQUENCY: OTHER
     Route: 065
     Dates: start: 201601, end: 201801

REACTIONS (2)
  - Gastric cancer [Fatal]
  - Bile duct cancer [Fatal]

NARRATIVE: CASE EVENT DATE: 20180701
